FAERS Safety Report 8603274-6 (Version None)
Quarter: 2012Q3

REPORT INFORMATION
  Report Type: 
  Country: None (occurrence: None)
  Receive Date: 20120817
  Receipt Date: 20120814
  Transmission Date: 20120928
  Serious: No
  Sender: FDA-Public Use
  Company Number: US-BAYER-2012-084393

PATIENT
  Age: 27 Year
  Sex: Female

DRUGS (3)
  1. PLAN B [Concomitant]
  2. PROGESTERONE [Concomitant]
  3. MIRENA [Suspect]
     Indication: CONTRACEPTION
     Dosage: 20 MCG/24HR, CONT
     Route: 015
     Dates: start: 20120618, end: 20120814

REACTIONS (2)
  - COITAL BLEEDING [None]
  - DEVICE EXPULSION [None]
